FAERS Safety Report 14179786 (Version 1)
Quarter: 2017Q4

REPORT INFORMATION
  Report Type: Spontaneous
  Country: US (occurrence: US)
  Receive Date: 20171110
  Receipt Date: 20171110
  Transmission Date: 20180321
  Serious: No
  Sender: FDA-Public Use
  Company Number: US-BAYER-2017-210805

PATIENT
  Sex: Female

DRUGS (5)
  1. ALEVE [Suspect]
     Active Substance: NAPROXEN SODIUM
     Dosage: UNK
  2. BAYER ASPIRIN [Suspect]
     Active Substance: ASPIRIN
     Dosage: UNK
  3. SKELAXIN [Concomitant]
     Active Substance: METAXALONE
     Indication: NECK PAIN
  4. HYDROCODONE [Concomitant]
     Active Substance: HYDROCODONE
     Indication: PAIN IN EXTREMITY
     Dosage: UNK
  5. SKELAXIN [Concomitant]
     Active Substance: METAXALONE
     Indication: BACK PAIN
     Dosage: 800 MG, Q8HR
     Route: 048

REACTIONS (2)
  - Anaemia [Unknown]
  - Ulcer [Unknown]
